FAERS Safety Report 14325793 (Version 9)
Quarter: 2025Q3

REPORT INFORMATION
  Report Type: Report from Study
  Country: EU (occurrence: EU)
  Receive Date: 20171226
  Receipt Date: 20250814
  Transmission Date: 20251020
  Serious: Yes (Other)
  Sender: MYLAN
  Company Number: None

PATIENT
  Age: 58 Year
  Sex: Female

DRUGS (168)
  1. VENLAFAXINE [Suspect]
     Active Substance: VENLAFAXINE HYDROCHLORIDE
     Indication: Depression
     Dosage: 75 MILLIGRAM, QH
     Route: 048
     Dates: start: 20161229
  2. VENLAFAXINE [Suspect]
     Active Substance: VENLAFAXINE HYDROCHLORIDE
     Dosage: 75 MILLIGRAM, QH
     Route: 048
     Dates: start: 20161229
  3. VENLAFAXINE [Suspect]
     Active Substance: VENLAFAXINE HYDROCHLORIDE
     Dosage: 75 MILLIGRAM, QH
     Dates: start: 20161229
  4. VENLAFAXINE [Suspect]
     Active Substance: VENLAFAXINE HYDROCHLORIDE
     Dosage: 75 MILLIGRAM, QH
     Dates: start: 20161229
  5. VENLAFAXINE [Suspect]
     Active Substance: VENLAFAXINE HYDROCHLORIDE
     Dosage: 150 MILLIGRAM, QD
     Dates: start: 20160907
  6. VENLAFAXINE [Suspect]
     Active Substance: VENLAFAXINE HYDROCHLORIDE
     Dosage: 150 MILLIGRAM, QD
     Dates: start: 20160907
  7. VENLAFAXINE [Suspect]
     Active Substance: VENLAFAXINE HYDROCHLORIDE
     Dosage: 150 MILLIGRAM, QD
     Route: 048
     Dates: start: 20160907
  8. VENLAFAXINE [Suspect]
     Active Substance: VENLAFAXINE HYDROCHLORIDE
     Dosage: 150 MILLIGRAM, QD
     Route: 048
     Dates: start: 20160907
  9. VENLAFAXINE [Suspect]
     Active Substance: VENLAFAXINE HYDROCHLORIDE
     Dosage: 225 MG, QD (225 MG, 1X/DAY)
     Route: 048
     Dates: start: 20161128
  10. VENLAFAXINE [Suspect]
     Active Substance: VENLAFAXINE HYDROCHLORIDE
     Dosage: 225 MG, QD (225 MG, 1X/DAY)
     Route: 048
     Dates: start: 20161128
  11. VENLAFAXINE [Suspect]
     Active Substance: VENLAFAXINE HYDROCHLORIDE
     Dosage: 225 MG, QD (225 MG, 1X/DAY)
     Dates: start: 20161128
  12. VENLAFAXINE [Suspect]
     Active Substance: VENLAFAXINE HYDROCHLORIDE
     Dosage: 225 MG, QD (225 MG, 1X/DAY)
     Dates: start: 20161128
  13. VENLAFAXINE [Suspect]
     Active Substance: VENLAFAXINE HYDROCHLORIDE
  14. VENLAFAXINE [Suspect]
     Active Substance: VENLAFAXINE HYDROCHLORIDE
  15. VENLAFAXINE [Suspect]
     Active Substance: VENLAFAXINE HYDROCHLORIDE
     Route: 048
  16. VENLAFAXINE [Suspect]
     Active Substance: VENLAFAXINE HYDROCHLORIDE
     Route: 048
  17. TREMELIMUMAB [Suspect]
     Active Substance: TREMELIMUMAB
     Indication: Non-small cell lung cancer
     Route: 042
  18. TREMELIMUMAB [Suspect]
     Active Substance: TREMELIMUMAB
  19. TREMELIMUMAB [Suspect]
     Active Substance: TREMELIMUMAB
  20. TREMELIMUMAB [Suspect]
     Active Substance: TREMELIMUMAB
     Route: 042
  21. TREMELIMUMAB [Suspect]
     Active Substance: TREMELIMUMAB
     Route: 042
  22. TREMELIMUMAB [Suspect]
     Active Substance: TREMELIMUMAB
     Route: 042
  23. TREMELIMUMAB [Suspect]
     Active Substance: TREMELIMUMAB
  24. TREMELIMUMAB [Suspect]
     Active Substance: TREMELIMUMAB
  25. TREMELIMUMAB [Suspect]
     Active Substance: TREMELIMUMAB
     Route: 042
     Dates: start: 20161104, end: 20161104
  26. TREMELIMUMAB [Suspect]
     Active Substance: TREMELIMUMAB
     Route: 042
     Dates: start: 20161104, end: 20161104
  27. TREMELIMUMAB [Suspect]
     Active Substance: TREMELIMUMAB
     Dates: start: 20161104, end: 20161104
  28. TREMELIMUMAB [Suspect]
     Active Substance: TREMELIMUMAB
     Dates: start: 20161104, end: 20161104
  29. TREMELIMUMAB [Suspect]
     Active Substance: TREMELIMUMAB
     Route: 042
     Dates: start: 20161130, end: 20161130
  30. TREMELIMUMAB [Suspect]
     Active Substance: TREMELIMUMAB
     Dates: start: 20161130, end: 20161130
  31. TREMELIMUMAB [Suspect]
     Active Substance: TREMELIMUMAB
     Dates: start: 20161130, end: 20161130
  32. TREMELIMUMAB [Suspect]
     Active Substance: TREMELIMUMAB
     Route: 042
     Dates: start: 20161130, end: 20161130
  33. DURVALUMAB [Suspect]
     Active Substance: DURVALUMAB
     Indication: Non-small cell lung cancer
     Dosage: 20 MG/KG, CYCLE, ONCE EVERY 4 WEEKS
     Route: 042
     Dates: start: 20161104, end: 20161104
  34. DURVALUMAB [Suspect]
     Active Substance: DURVALUMAB
     Dosage: 20 MG/KG, CYCLE, ONCE EVERY 4 WEEKS
     Route: 042
     Dates: start: 20161104, end: 20161104
  35. DURVALUMAB [Suspect]
     Active Substance: DURVALUMAB
     Dosage: 20 MG/KG, CYCLE, ONCE EVERY 4 WEEKS
     Dates: start: 20161104, end: 20161104
  36. DURVALUMAB [Suspect]
     Active Substance: DURVALUMAB
     Dosage: 20 MG/KG, CYCLE, ONCE EVERY 4 WEEKS
     Dates: start: 20161104, end: 20161104
  37. DURVALUMAB [Suspect]
     Active Substance: DURVALUMAB
     Dosage: 20 MG/KG, ONCE EVERY 4 WEEK
     Route: 042
     Dates: start: 20161130, end: 20161130
  38. DURVALUMAB [Suspect]
     Active Substance: DURVALUMAB
     Dosage: 20 MG/KG, ONCE EVERY 4 WEEK
     Dates: start: 20161130, end: 20161130
  39. DURVALUMAB [Suspect]
     Active Substance: DURVALUMAB
     Dosage: 20 MG/KG, ONCE EVERY 4 WEEK
     Dates: start: 20161130, end: 20161130
  40. DURVALUMAB [Suspect]
     Active Substance: DURVALUMAB
     Dosage: 20 MG/KG, ONCE EVERY 4 WEEK
     Route: 042
     Dates: start: 20161130, end: 20161130
  41. DURVALUMAB [Suspect]
     Active Substance: DURVALUMAB
     Dosage: 20 MG/KG, 4 WEEK
     Route: 042
     Dates: start: 20161130, end: 20161130
  42. DURVALUMAB [Suspect]
     Active Substance: DURVALUMAB
     Dosage: 20 MG/KG, 4 WEEK
     Route: 042
     Dates: start: 20161130, end: 20161130
  43. DURVALUMAB [Suspect]
     Active Substance: DURVALUMAB
     Dosage: 20 MG/KG, 4 WEEK
     Dates: start: 20161130, end: 20161130
  44. DURVALUMAB [Suspect]
     Active Substance: DURVALUMAB
     Dosage: 20 MG/KG, 4 WEEK
     Dates: start: 20161130, end: 20161130
  45. DURVALUMAB [Suspect]
     Active Substance: DURVALUMAB
     Dosage: 20 MG/KG,4 WEEK
     Route: 042
     Dates: start: 20161104, end: 20161104
  46. DURVALUMAB [Suspect]
     Active Substance: DURVALUMAB
     Dosage: 20 MG/KG,4 WEEK
     Dates: start: 20161104, end: 20161104
  47. DURVALUMAB [Suspect]
     Active Substance: DURVALUMAB
     Dosage: 20 MG/KG,4 WEEK
     Dates: start: 20161104, end: 20161104
  48. DURVALUMAB [Suspect]
     Active Substance: DURVALUMAB
     Dosage: 20 MG/KG,4 WEEK
     Route: 042
     Dates: start: 20161104, end: 20161104
  49. LACTULOSE [Concomitant]
     Active Substance: LACTULOSE
     Indication: Constipation
  50. LACTULOSE [Concomitant]
     Active Substance: LACTULOSE
     Route: 048
  51. LACTULOSE [Concomitant]
     Active Substance: LACTULOSE
     Route: 048
  52. LACTULOSE [Concomitant]
     Active Substance: LACTULOSE
  53. LACTULOSE [Concomitant]
     Active Substance: LACTULOSE
     Dosage: 3 DOSAGE FORM, QD, 1.00 SPOON TID
     Route: 048
     Dates: start: 20160928
  54. LACTULOSE [Concomitant]
     Active Substance: LACTULOSE
     Dosage: 3 DOSAGE FORM, QD, 1.00 SPOON TID
     Route: 048
     Dates: start: 20160928
  55. LACTULOSE [Concomitant]
     Active Substance: LACTULOSE
     Dosage: 3 DOSAGE FORM, QD, 1.00 SPOON TID
     Dates: start: 20160928
  56. LACTULOSE [Concomitant]
     Active Substance: LACTULOSE
     Dosage: 3 DOSAGE FORM, QD, 1.00 SPOON TID
     Dates: start: 20160928
  57. LACTULOSE [Concomitant]
     Active Substance: LACTULOSE
     Dosage: 1 DOSAGE FORM, QD, (1.00 SPOON TID)
     Dates: start: 20160928
  58. LACTULOSE [Concomitant]
     Active Substance: LACTULOSE
     Dosage: 1 DOSAGE FORM, QD, (1.00 SPOON TID)
     Route: 048
     Dates: start: 20160928
  59. LACTULOSE [Concomitant]
     Active Substance: LACTULOSE
     Dosage: 1 DOSAGE FORM, QD, (1.00 SPOON TID)
     Dates: start: 20160928
  60. LACTULOSE [Concomitant]
     Active Substance: LACTULOSE
     Dosage: 1 DOSAGE FORM, QD, (1.00 SPOON TID)
     Route: 048
     Dates: start: 20160928
  61. SODIUM CITRATE [Concomitant]
     Active Substance: SODIUM CITRATE
     Indication: Constipation
  62. SODIUM CITRATE [Concomitant]
     Active Substance: SODIUM CITRATE
     Route: 054
  63. SODIUM CITRATE [Concomitant]
     Active Substance: SODIUM CITRATE
     Route: 054
  64. SODIUM CITRATE [Concomitant]
     Active Substance: SODIUM CITRATE
  65. GABAPENTIN [Concomitant]
     Active Substance: GABAPENTIN
     Indication: Pain
     Dosage: 40 MILLIGRAM, TID
     Dates: start: 20160928
  66. GABAPENTIN [Concomitant]
     Active Substance: GABAPENTIN
     Dosage: 40 MILLIGRAM, TID
     Route: 048
     Dates: start: 20160928
  67. GABAPENTIN [Concomitant]
     Active Substance: GABAPENTIN
     Dosage: 40 MILLIGRAM, TID
     Route: 048
     Dates: start: 20160928
  68. GABAPENTIN [Concomitant]
     Active Substance: GABAPENTIN
     Dosage: 40 MILLIGRAM, TID
     Dates: start: 20160928
  69. GABAPENTIN [Concomitant]
     Active Substance: GABAPENTIN
     Dosage: 400 MILLIGRAM, TID
     Route: 048
     Dates: start: 20160928
  70. GABAPENTIN [Concomitant]
     Active Substance: GABAPENTIN
     Dosage: 400 MILLIGRAM, TID
     Route: 048
     Dates: start: 20160928
  71. GABAPENTIN [Concomitant]
     Active Substance: GABAPENTIN
     Dosage: 400 MILLIGRAM, TID
     Dates: start: 20160928
  72. GABAPENTIN [Concomitant]
     Active Substance: GABAPENTIN
     Dosage: 400 MILLIGRAM, TID
     Dates: start: 20160928
  73. GABAPENTIN [Concomitant]
     Active Substance: GABAPENTIN
     Dosage: 40 MILLIGRAM, QD
     Dates: start: 20160928
  74. GABAPENTIN [Concomitant]
     Active Substance: GABAPENTIN
     Dosage: 40 MILLIGRAM, QD
     Route: 048
     Dates: start: 20160928
  75. GABAPENTIN [Concomitant]
     Active Substance: GABAPENTIN
     Dosage: 40 MILLIGRAM, QD
     Dates: start: 20160928
  76. GABAPENTIN [Concomitant]
     Active Substance: GABAPENTIN
     Dosage: 40 MILLIGRAM, QD
     Route: 048
     Dates: start: 20160928
  77. SODIUM LAURYL SULFOACETATE [Concomitant]
     Active Substance: SODIUM LAURYL SULFOACETATE
     Indication: Constipation
  78. SODIUM LAURYL SULFOACETATE [Concomitant]
     Active Substance: SODIUM LAURYL SULFOACETATE
     Route: 054
  79. SODIUM LAURYL SULFOACETATE [Concomitant]
     Active Substance: SODIUM LAURYL SULFOACETATE
     Route: 054
  80. SODIUM LAURYL SULFOACETATE [Concomitant]
     Active Substance: SODIUM LAURYL SULFOACETATE
  81. FENTANYL [Concomitant]
     Active Substance: FENTANYL
     Indication: Pain
  82. FENTANYL [Concomitant]
     Active Substance: FENTANYL
  83. FENTANYL [Concomitant]
     Active Substance: FENTANYL
     Route: 003
  84. FENTANYL [Concomitant]
     Active Substance: FENTANYL
     Route: 003
  85. FENTANYL [Concomitant]
     Active Substance: FENTANYL
  86. FENTANYL [Concomitant]
     Active Substance: FENTANYL
  87. FENTANYL [Concomitant]
     Active Substance: FENTANYL
     Route: 003
  88. FENTANYL [Concomitant]
     Active Substance: FENTANYL
     Route: 003
  89. CLOBAZAM [Concomitant]
     Active Substance: CLOBAZAM
     Indication: Depression
  90. CLOBAZAM [Concomitant]
     Active Substance: CLOBAZAM
     Route: 048
  91. CLOBAZAM [Concomitant]
     Active Substance: CLOBAZAM
     Route: 048
  92. CLOBAZAM [Concomitant]
     Active Substance: CLOBAZAM
  93. MORPHINE SULFATE [Concomitant]
     Active Substance: MORPHINE SULFATE
     Indication: Pain
     Route: 048
  94. MORPHINE SULFATE [Concomitant]
     Active Substance: MORPHINE SULFATE
  95. MORPHINE SULFATE [Concomitant]
     Active Substance: MORPHINE SULFATE
  96. MORPHINE SULFATE [Concomitant]
     Active Substance: MORPHINE SULFATE
     Route: 048
  97. MORPHINE SULFATE [Concomitant]
     Active Substance: MORPHINE SULFATE
     Route: 048
  98. MORPHINE SULFATE [Concomitant]
     Active Substance: MORPHINE SULFATE
     Route: 048
  99. MORPHINE SULFATE [Concomitant]
     Active Substance: MORPHINE SULFATE
  100. MORPHINE SULFATE [Concomitant]
     Active Substance: MORPHINE SULFATE
  101. MORPHINE SULFATE [Concomitant]
     Active Substance: MORPHINE SULFATE
     Route: 048
  102. MORPHINE SULFATE [Concomitant]
     Active Substance: MORPHINE SULFATE
     Route: 048
  103. MORPHINE SULFATE [Concomitant]
     Active Substance: MORPHINE SULFATE
  104. MORPHINE SULFATE [Concomitant]
     Active Substance: MORPHINE SULFATE
  105. MORPHINE SULFATE [Concomitant]
     Active Substance: MORPHINE SULFATE
     Route: 048
  106. MORPHINE SULFATE [Concomitant]
     Active Substance: MORPHINE SULFATE
  107. MORPHINE SULFATE [Concomitant]
     Active Substance: MORPHINE SULFATE
  108. MORPHINE SULFATE [Concomitant]
     Active Substance: MORPHINE SULFATE
     Route: 048
  109. NYSTATIN [Concomitant]
     Active Substance: NYSTATIN
     Indication: Mucosal inflammation
     Dosage: 24 MILLILITER, QD (6.00 ML QID)
     Dates: start: 20161117
  110. NYSTATIN [Concomitant]
     Active Substance: NYSTATIN
     Dosage: 24 MILLILITER, QD (6.00 ML QID)
     Route: 048
     Dates: start: 20161117
  111. NYSTATIN [Concomitant]
     Active Substance: NYSTATIN
     Dosage: 24 MILLILITER, QD (6.00 ML QID)
     Route: 048
     Dates: start: 20161117
  112. NYSTATIN [Concomitant]
     Active Substance: NYSTATIN
     Dosage: 24 MILLILITER, QD (6.00 ML QID)
     Dates: start: 20161117
  113. MIRTAZAPINE [Concomitant]
     Active Substance: MIRTAZAPINE
     Indication: Depression
     Dosage: 30 MILLIGRAM, QD
     Route: 048
     Dates: start: 20160907
  114. MIRTAZAPINE [Concomitant]
     Active Substance: MIRTAZAPINE
     Dosage: 30 MILLIGRAM, QD
     Dates: start: 20160907
  115. MIRTAZAPINE [Concomitant]
     Active Substance: MIRTAZAPINE
     Dosage: 30 MILLIGRAM, QD
     Dates: start: 20160907
  116. MIRTAZAPINE [Concomitant]
     Active Substance: MIRTAZAPINE
     Dosage: 30 MILLIGRAM, QD
     Route: 048
     Dates: start: 20160907
  117. MIRTAZAPINE [Concomitant]
     Active Substance: MIRTAZAPINE
     Dosage: 30 MILLIGRAM, QD, 30 MG +5ML
  118. MIRTAZAPINE [Concomitant]
     Active Substance: MIRTAZAPINE
     Dosage: 30 MILLIGRAM, QD, 30 MG +5ML
  119. MIRTAZAPINE [Concomitant]
     Active Substance: MIRTAZAPINE
     Dosage: 30 MILLIGRAM, QD, 30 MG +5ML
     Route: 065
  120. MIRTAZAPINE [Concomitant]
     Active Substance: MIRTAZAPINE
     Dosage: 30 MILLIGRAM, QD, 30 MG +5ML
     Route: 065
  121. MIRTAZAPINE [Concomitant]
     Active Substance: MIRTAZAPINE
     Dosage: 30 MILLIGRAM, QD
     Route: 065
  122. MIRTAZAPINE [Concomitant]
     Active Substance: MIRTAZAPINE
     Dosage: 30 MILLIGRAM, QD
  123. MIRTAZAPINE [Concomitant]
     Active Substance: MIRTAZAPINE
     Dosage: 30 MILLIGRAM, QD
  124. MIRTAZAPINE [Concomitant]
     Active Substance: MIRTAZAPINE
     Dosage: 30 MILLIGRAM, QD
     Route: 065
  125. Sene [Concomitant]
     Indication: Constipation
     Dosage: 2 DOSAGE FORM, QD,
     Dates: start: 20160928
  126. Sene [Concomitant]
     Dosage: 2 DOSAGE FORM, QD,
     Route: 048
     Dates: start: 20160928
  127. Sene [Concomitant]
     Dosage: 2 DOSAGE FORM, QD,
     Route: 048
     Dates: start: 20160928
  128. Sene [Concomitant]
     Dosage: 2 DOSAGE FORM, QD,
     Dates: start: 20160928
  129. METHIMAZOLE [Concomitant]
     Active Substance: METHIMAZOLE
     Indication: Thyroid cyst
     Dosage: 5 MILLIGRAM, QD
     Dates: start: 20160907
  130. METHIMAZOLE [Concomitant]
     Active Substance: METHIMAZOLE
     Dosage: 5 MILLIGRAM, QD
     Route: 048
     Dates: start: 20160907
  131. METHIMAZOLE [Concomitant]
     Active Substance: METHIMAZOLE
     Dosage: 5 MILLIGRAM, QD
     Route: 048
     Dates: start: 20160907
  132. METHIMAZOLE [Concomitant]
     Active Substance: METHIMAZOLE
     Dosage: 5 MILLIGRAM, QD
     Dates: start: 20160907
  133. Bisacodil arena [Concomitant]
     Indication: Constipation
     Dosage: 2 DOSAGE FORM, QD
     Dates: start: 20160928
  134. Bisacodil arena [Concomitant]
     Dosage: 2 DOSAGE FORM, QD
     Route: 048
     Dates: start: 20160928
  135. Bisacodil arena [Concomitant]
     Dosage: 2 DOSAGE FORM, QD
     Route: 048
     Dates: start: 20160928
  136. Bisacodil arena [Concomitant]
     Dosage: 2 DOSAGE FORM, QD
     Dates: start: 20160928
  137. AMITRIPTYLINE HYDROCHLORIDE [Concomitant]
     Active Substance: AMITRIPTYLINE HYDROCHLORIDE
     Indication: Depression
     Dosage: 50 MILLIGRAM, QD (25.00 MG BID)
     Dates: start: 20160928
  138. AMITRIPTYLINE HYDROCHLORIDE [Concomitant]
     Active Substance: AMITRIPTYLINE HYDROCHLORIDE
     Dosage: 50 MILLIGRAM, QD (25.00 MG BID)
     Route: 048
     Dates: start: 20160928
  139. AMITRIPTYLINE HYDROCHLORIDE [Concomitant]
     Active Substance: AMITRIPTYLINE HYDROCHLORIDE
     Dosage: 50 MILLIGRAM, QD (25.00 MG BID)
     Route: 048
     Dates: start: 20160928
  140. AMITRIPTYLINE HYDROCHLORIDE [Concomitant]
     Active Substance: AMITRIPTYLINE HYDROCHLORIDE
     Dosage: 50 MILLIGRAM, QD (25.00 MG BID)
     Dates: start: 20160928
  141. SUCRALFATE [Concomitant]
     Active Substance: SUCRALFATE
     Indication: Prophylaxis
     Dosage: 3 DOSAGE FORM, QD
     Route: 048
     Dates: start: 20160928
  142. SUCRALFATE [Concomitant]
     Active Substance: SUCRALFATE
     Dosage: 3 DOSAGE FORM, QD
     Dates: start: 20160928
  143. SUCRALFATE [Concomitant]
     Active Substance: SUCRALFATE
     Dosage: 3 DOSAGE FORM, QD
     Dates: start: 20160928
  144. SUCRALFATE [Concomitant]
     Active Substance: SUCRALFATE
     Dosage: 3 DOSAGE FORM, QD
     Route: 048
     Dates: start: 20160928
  145. SUCRALFATE [Concomitant]
     Active Substance: SUCRALFATE
     Dosage: 1 DOSAGE FORM, QD, 1.00 SACHET, QID
     Route: 048
     Dates: start: 20160928
  146. SUCRALFATE [Concomitant]
     Active Substance: SUCRALFATE
     Dosage: 1 DOSAGE FORM, QD, 1.00 SACHET, QID
     Dates: start: 20160928
  147. SUCRALFATE [Concomitant]
     Active Substance: SUCRALFATE
     Dosage: 1 DOSAGE FORM, QD, 1.00 SACHET, QID
     Dates: start: 20160928
  148. SUCRALFATE [Concomitant]
     Active Substance: SUCRALFATE
     Dosage: 1 DOSAGE FORM, QD, 1.00 SACHET, QID
     Route: 048
     Dates: start: 20160928
  149. PANTOPRAZOLE [Concomitant]
     Active Substance: PANTOPRAZOLE
     Indication: Prophylaxis
     Dosage: 40 MILLIGRAM, QD
     Dates: start: 20160928
  150. PANTOPRAZOLE [Concomitant]
     Active Substance: PANTOPRAZOLE
     Dosage: 40 MILLIGRAM, QD
     Route: 048
     Dates: start: 20160928
  151. PANTOPRAZOLE [Concomitant]
     Active Substance: PANTOPRAZOLE
     Dosage: 40 MILLIGRAM, QD
     Route: 048
     Dates: start: 20160928
  152. PANTOPRAZOLE [Concomitant]
     Active Substance: PANTOPRAZOLE
     Dosage: 40 MILLIGRAM, QD
     Dates: start: 20160928
  153. METHYLPREDNISOLONE [Concomitant]
     Active Substance: METHYLPREDNISOLONE
     Indication: Pain
     Dosage: 0.5 MILLIGRAM, QD
     Dates: start: 20161021
  154. METHYLPREDNISOLONE [Concomitant]
     Active Substance: METHYLPREDNISOLONE
     Dosage: 0.5 MILLIGRAM, QD
     Dates: start: 20161021
  155. METHYLPREDNISOLONE [Concomitant]
     Active Substance: METHYLPREDNISOLONE
     Dosage: 0.5 MILLIGRAM, QD
     Route: 048
     Dates: start: 20161021
  156. METHYLPREDNISOLONE [Concomitant]
     Active Substance: METHYLPREDNISOLONE
     Dosage: 0.5 MILLIGRAM, QD
     Route: 048
     Dates: start: 20161021
  157. METHYLPREDNISOLONE [Concomitant]
     Active Substance: METHYLPREDNISOLONE
     Dosage: 0.5 DOSAGE FORM, QD
     Dates: start: 20161021
  158. METHYLPREDNISOLONE [Concomitant]
     Active Substance: METHYLPREDNISOLONE
     Dosage: 0.5 DOSAGE FORM, QD
     Dates: start: 20161021
  159. METHYLPREDNISOLONE [Concomitant]
     Active Substance: METHYLPREDNISOLONE
     Dosage: 0.5 DOSAGE FORM, QD
     Route: 048
     Dates: start: 20161021
  160. METHYLPREDNISOLONE [Concomitant]
     Active Substance: METHYLPREDNISOLONE
     Dosage: 0.5 DOSAGE FORM, QD
     Route: 048
     Dates: start: 20161021
  161. METHIMAZOLE [Concomitant]
     Active Substance: METHIMAZOLE
     Indication: Thyroid cyst
  162. METHIMAZOLE [Concomitant]
     Active Substance: METHIMAZOLE
  163. METHIMAZOLE [Concomitant]
     Active Substance: METHIMAZOLE
     Route: 048
  164. METHIMAZOLE [Concomitant]
     Active Substance: METHIMAZOLE
     Route: 048
  165. METHIMAZOLE [Concomitant]
     Active Substance: METHIMAZOLE
     Dosage: 5 MG, QD
     Dates: start: 20160907
  166. METHIMAZOLE [Concomitant]
     Active Substance: METHIMAZOLE
     Dosage: 5 MG, QD
     Dates: start: 20160907
  167. METHIMAZOLE [Concomitant]
     Active Substance: METHIMAZOLE
     Dosage: 5 MG, QD
     Route: 048
     Dates: start: 20160907
  168. METHIMAZOLE [Concomitant]
     Active Substance: METHIMAZOLE
     Dosage: 5 MG, QD
     Route: 048
     Dates: start: 20160907

REACTIONS (1)
  - Drug-induced liver injury [Recovering/Resolving]

NARRATIVE: CASE EVENT DATE: 20161229
